FAERS Safety Report 7142821-0 (Version None)
Quarter: 2010Q4

REPORT INFORMATION
  Report Type: 
  Country: None (occurrence: None)
  Receive Date: 20101207
  Receipt Date: 20101126
  Transmission Date: 20110411
  Serious: Yes (Hospitalization)
  Sender: FDA-Public Use
  Company Number: FR-PFIZER INC-FR-WYE-G03136109

PATIENT
  Age: 23 Year
  Sex: Male
  Weight: 70 kg

DRUGS (3)
  1. ADVIL [Suspect]
     Indication: PRODUCT USED FOR UNKNOWN INDICATION
     Dosage: 200 MG, 2X/DAY
     Route: 048
     Dates: start: 20081211, end: 20081215
  2. ZITHROMAX [Suspect]
     Indication: PHARYNGOTONSILLITIS
     Dosage: 250 MG, 2X/DAY
     Route: 048
     Dates: start: 20081211, end: 20081213
  3. PARACETAMOL [Suspect]
     Indication: PRODUCT USED FOR UNKNOWN INDICATION
     Dosage: 500 MG, 2X/DAY
     Route: 048
     Dates: start: 20081211, end: 20081215

REACTIONS (6)
  - ALANINE AMINOTRANSFERASE INCREASED [None]
  - ASPARTATE AMINOTRANSFERASE INCREASED [None]
  - GINGIVAL PAIN [None]
  - MENINGISM [None]
  - MONOCYTOSIS [None]
  - PHARYNGOTONSILLITIS [None]
